FAERS Safety Report 9325721 (Version 2)
Quarter: 2013Q2

REPORT INFORMATION
  Report Type: Spontaneous
  Country: ES (occurrence: ES)
  Receive Date: 20130604
  Receipt Date: 20130610
  Transmission Date: 20140414
  Serious: Yes (Other)
  Sender: FDA-Public Use
  Company Number: ES-009507513-1305ESP017509

PATIENT
  Age: 22 Year
  Sex: Female
  Weight: 50 kg

DRUGS (1)
  1. NUVARING [Suspect]
     Indication: CONTRACEPTION
     Dosage: ETONOGESTREL 0.120 MG (+) ETHINYL ESTRADIOL 0.015 MG, ONE VAGINAL RING PER MONTH
     Route: 067
     Dates: start: 2012

REACTIONS (1)
  - Multiple sclerosis [Unknown]
